FAERS Safety Report 23501870 (Version 8)
Quarter: 2024Q2

REPORT INFORMATION
  Report Type: Spontaneous
  Country: FR (occurrence: FR)
  Receive Date: 20240208
  Receipt Date: 20240606
  Transmission Date: 20240716
  Serious: Yes (Other)
  Sender: FDA-Public Use
  Company Number: FR-PFIZER INC-PV202400018332

PATIENT
  Age: 71 Year
  Sex: Female

DRUGS (1)
  1. PALBOCICLIB [Suspect]
     Active Substance: PALBOCICLIB
     Indication: Breast cancer
     Dosage: UNK

REACTIONS (17)
  - Decreased appetite [Recovering/Resolving]
  - Weight decreased [Unknown]
  - Malnutrition [Unknown]
  - Gastrooesophageal reflux disease [Recovered/Resolved]
  - Fatigue [Unknown]
  - Dysgeusia [Not Recovered/Not Resolved]
  - Taste disorder [Unknown]
  - Ageusia [Unknown]
  - Dry skin [Recovered/Resolved]
  - Constipation [Not Recovered/Not Resolved]
  - Neutrophil count decreased [Recovering/Resolving]
  - Stomatitis [Recovered/Resolved]
  - Tooth loss [Unknown]
  - Vision blurred [Recovered/Resolved]
  - Oesophageal pain [Recovered/Resolved]
  - Palpitations [Recovered/Resolved]
  - Anaemia [Unknown]
